FAERS Safety Report 19180586 (Version 1)
Quarter: 2021Q2

REPORT INFORMATION
  Report Type: Spontaneous
  Country: CN (occurrence: CN)
  Receive Date: 20210426
  Receipt Date: 20210426
  Transmission Date: 20210717
  Serious: Yes (Other)
  Sender: FDA-Public Use
  Company Number: CN-PFIZER INC-2021426576

PATIENT
  Age: 19 Year
  Sex: Male
  Weight: 95 kg

DRUGS (1)
  1. METHOTREXATE. [Suspect]
     Active Substance: METHOTREXATE
     Indication: THERAPEUTIC PROCEDURE
     Dosage: 5 G, 1X/DAY (REPORTED ALSO AS 300MG/M^2 AT THE FIRST 1H, 2700MG/M^2 AT THE 2?24H)
     Route: 041
     Dates: start: 20210331, end: 20210331

REACTIONS (3)
  - Throat irritation [Unknown]
  - Mucosal inflammation [Unknown]
  - Haemoptysis [Unknown]

NARRATIVE: CASE EVENT DATE: 20210404
